FAERS Safety Report 21122725 (Version 5)
Quarter: 2022Q3

REPORT INFORMATION
  Report Type: Spontaneous
  Country: US (occurrence: US)
  Receive Date: 20220723
  Receipt Date: 20220830
  Transmission Date: 20221026
  Serious: Yes (Other)
  Sender: FDA-Public Use
  Company Number: US-UNITED THERAPEUTICS-UNT-2022-016075

PATIENT
  Sex: Male

DRUGS (12)
  1. ORENITRAM [Suspect]
     Active Substance: TREPROSTINIL
     Indication: Pulmonary arterial hypertension
     Dosage: UNK
     Route: 048
     Dates: start: 20210603, end: 202208
  2. ORENITRAM [Suspect]
     Active Substance: TREPROSTINIL
     Dosage: UNK
     Route: 048
     Dates: start: 20210730
  3. ORENITRAM [Suspect]
     Active Substance: TREPROSTINIL
     Dosage: UNK
     Route: 048
     Dates: start: 20210804
  4. ORENITRAM [Suspect]
     Active Substance: TREPROSTINIL
     Dosage: 0.5 MG, TID
     Route: 048
  5. ORENITRAM [Suspect]
     Active Substance: TREPROSTINIL
     Dosage: 0.25 MG, TID
     Route: 048
  6. ORENITRAM [Suspect]
     Active Substance: TREPROSTINIL
     Dosage: 1.125 MG, TID
     Route: 048
  7. ORENITRAM [Suspect]
     Active Substance: TREPROSTINIL
     Indication: Pulmonary arterial hypertension
     Dosage: UNK
     Route: 048
  8. ORENITRAM [Suspect]
     Active Substance: TREPROSTINIL
     Indication: Pulmonary arterial hypertension
     Dosage: UNK
     Route: 048
  9. TYVASO [Suspect]
     Active Substance: TREPROSTINIL
     Indication: Pulmonary arterial hypertension
     Dosage: UNK
     Dates: start: 20220723
  10. TYVASO [Suspect]
     Active Substance: TREPROSTINIL
     Dosage: 6 ?G, QID
     Dates: start: 2022, end: 202208
  11. TYVASO [Suspect]
     Active Substance: TREPROSTINIL
     Dosage: 18 ?G, QID
     Dates: start: 202208, end: 202208
  12. TYVASO [Suspect]
     Active Substance: TREPROSTINIL
     Dosage: 30 ?G, QID
     Dates: start: 202208

REACTIONS (9)
  - Dyspnoea at rest [Unknown]
  - Bendopnoea [Unknown]
  - Dyspnoea [Not Recovered/Not Resolved]
  - Cough [Recovered/Resolved]
  - Sensitivity to weather change [Unknown]
  - Chronic obstructive pulmonary disease [Unknown]
  - Headache [Recovered/Resolved]
  - Dizziness postural [Recovered/Resolved]
  - Chest pain [Recovered/Resolved]

NARRATIVE: CASE EVENT DATE: 20220101
